FAERS Safety Report 7488517-7 (Version None)
Quarter: 2011Q2

REPORT INFORMATION
  Report Type: 
  Country: None (occurrence: None)
  Receive Date: 20110511
  Receipt Date: 20110429
  Transmission Date: 20111010
  Serious: Yes (Other)
  Sender: FDA-Public Use
  Company Number: TPA2011A01327

PATIENT
  Age: 73 Year
  Sex: Male
  Weight: 82.1011 kg

DRUGS (1)
  1. ACTOS [Suspect]
     Indication: DIABETES MELLITUS
     Dosage: 45 MG, PER ORAL
     Route: 048
     Dates: start: 20000401, end: 20071101

REACTIONS (2)
  - BLADDER CANCER [None]
  - CARDIAC FAILURE CONGESTIVE [None]
